FAERS Safety Report 16313243 (Version 1)
Quarter: 2019Q2

REPORT INFORMATION
  Report Type: Spontaneous
  Country: GB (occurrence: GB)
  Receive Date: 20190515
  Receipt Date: 20190515
  Transmission Date: 20190711
  Serious: Yes (Other)
  Sender: FDA-Public Use
  Company Number: GB-BAUSCH-BL-2019-013913

PATIENT
  Age: 64 Year
  Sex: Female

DRUGS (1)
  1. ALDARA [Suspect]
     Active Substance: IMIQUIMOD
     Indication: BASAL CELL CARCINOMA
     Dosage: DAILY ON SEVEN LESIONS, A TOTAL OF 44 SACHETS
     Route: 065

REACTIONS (1)
  - Psoriasis [Recovering/Resolving]
